APPROVED DRUG PRODUCT: MEPERIDINE HYDROCHLORIDE
Active Ingredient: MEPERIDINE HYDROCHLORIDE
Strength: 100MG
Dosage Form/Route: TABLET;ORAL
Application: A040352 | Product #002
Applicant: SPECGX LLC
Approved: Jun 13, 2000 | RLD: No | RS: No | Type: DISCN